FAERS Safety Report 16920441 (Version 1)
Quarter: 2019Q4

REPORT INFORMATION
  Report Type: Spontaneous
  Country: US (occurrence: US)
  Receive Date: 20191015
  Receipt Date: 20191015
  Transmission Date: 20200122
  Serious: No
  Sender: FDA-Public Use
  Company Number: US-BAYER-2019-182663

PATIENT
  Age: 55 Year
  Sex: Female

DRUGS (1)
  1. CLIMARA [Suspect]
     Active Substance: ESTRADIOL
     Route: 062

REACTIONS (2)
  - Weight decreased [None]
  - Weight increased [None]
